FAERS Safety Report 4694744-4 (Version None)
Quarter: 2005Q2

REPORT INFORMATION
  Report Type: 
  Country: None (occurrence: None)
  Receive Date: 20050620
  Receipt Date: 20050607
  Transmission Date: 20051028
  Serious: Yes (Death, Hospitalization)
  Sender: FDA-Public Use
  Company Number: 200511930FR

PATIENT
  Age: 52 Year
  Sex: Female
  Weight: 38 kg

DRUGS (3)
  1. DOCETAXEL [Suspect]
     Indication: OROPHARYNGEAL CANCER STAGE UNSPECIFIED
     Route: 042
     Dates: start: 20050228, end: 20050410
  2. TOPALGIC [Concomitant]
     Indication: PAIN
     Route: 048
     Dates: start: 20050314, end: 20050506
  3. OMEPRAZOLE [Concomitant]
     Indication: OESOPHAGITIS
     Route: 048
     Dates: start: 20050314, end: 20050506

REACTIONS (4)
  - DEHYDRATION [None]
  - GENERAL PHYSICAL HEALTH DETERIORATION [None]
  - HYPOTENSION [None]
  - NEOPLASM MALIGNANT [None]
